FAERS Safety Report 8368173-6 (Version None)
Quarter: 2012Q2

REPORT INFORMATION
  Report Type: 
  Country: None (occurrence: None)
  Receive Date: 20120517
  Receipt Date: 20120502
  Transmission Date: 20120825
  Serious: Yes (Other)
  Sender: FDA-Public Use
  Company Number: CHPA2012US010314

PATIENT
  Age: 84 Year
  Sex: Female

DRUGS (2)
  1. EXCEDRIN EXTRA STRENGTH TABLETS [Suspect]
     Indication: ARTHRITIS
     Dosage: 2 DF, PER DAY
     Route: 048
     Dates: start: 19620101
  2. EXCEDRIN BACK \+ BODY CAPLETS [Suspect]
     Indication: ARTHRITIS
     Dosage: 1 DF, OCCASIONALLY AT NIGHT
     Route: 048
     Dates: start: 20070101

REACTIONS (1)
  - DRUG DEPENDENCE [None]
